FAERS Safety Report 8071754-0 (Version None)
Quarter: 2012Q1

REPORT INFORMATION
  Report Type: 
  Country: None (occurrence: None)
  Receive Date: 20120125
  Receipt Date: 20111205
  Transmission Date: 20120608
  Serious: Yes (Other)
  Sender: FDA-Public Use
  Company Number: GB-MERCK-1201GBR00073

PATIENT
  Sex: Female

DRUGS (7)
  1. TRAMADOL HYDROCHLORIDE [Concomitant]
     Route: 048
  2. INVANZ [Suspect]
     Route: 041
  3. CITALOPRAM [Concomitant]
     Route: 065
  4. AMISULPRIDE [Concomitant]
     Route: 065
  5. LACTULOSE [Concomitant]
     Route: 065
  6. ENOXAPARIN SODIUM [Concomitant]
     Route: 065
  7. BUDESONIDE AND FORMOTEROL FUMARATE [Concomitant]
     Route: 065
     Dates: start: 20060101

REACTIONS (1)
  - NEUROLEPTIC MALIGNANT SYNDROME [None]
